FAERS Safety Report 24211252 (Version 2)
Quarter: 2024Q3

REPORT INFORMATION
  Report Type: Spontaneous
  Country: CA (occurrence: CA)
  Receive Date: 20240814
  Receipt Date: 20240928
  Transmission Date: 20241016
  Serious: No
  Sender: IPSEN
  Company Number: CA-IPSEN Group, Research and Development-2024-16123

PATIENT
  Age: 5 Year
  Sex: Male
  Weight: 15 kg

DRUGS (2)
  1. DYSPORT [Suspect]
     Active Substance: ABOBOTULINUMTOXINA
     Indication: Muscle spasticity
     Dosage: 7 DAYS
     Route: 030
     Dates: start: 20231108, end: 20231108
  2. DYSPORT [Suspect]
     Active Substance: ABOBOTULINUMTOXINA
     Route: 030

REACTIONS (6)
  - Injection site paraesthesia [Recovered/Resolved]
  - Gait disturbance [Recovered/Resolved]
  - Crying [Recovered/Resolved]
  - Injection site pain [Recovered/Resolved]
  - Prescribed overdose [Unknown]
  - Off label use [Unknown]

NARRATIVE: CASE EVENT DATE: 20231108
